FAERS Safety Report 9587959 (Version 1)
Quarter: 2013Q4

REPORT INFORMATION
  Report Type: Report from Study
  Country: TW (occurrence: TW)
  Receive Date: 20131003
  Receipt Date: 20131003
  Transmission Date: 20140711
  Serious: Yes (Other)
  Sender: FDA-Public Use
  Company Number: PHHY2012TW129401

PATIENT
  Age: 45 Year
  Sex: Male

DRUGS (37)
  1. AMN107 [Suspect]
     Dosage: 600 MG, UNK
     Dates: start: 20101129, end: 20110115
  2. AMN107 [Suspect]
     Dosage: 800 MG, UNK
     Dates: start: 20110214, end: 20110317
  3. AMN107 [Suspect]
     Dosage: 800 MG, UNK
     Dates: start: 20110407, end: 20110718
  4. AMN107 [Suspect]
     Dosage: 800 MG, UNK
     Dates: start: 20110725
  5. BENZONATATE [Concomitant]
     Indication: COUGH
     Dosage: UNK
     Dates: start: 20101208, end: 20101215
  6. BENZONATATE [Concomitant]
     Indication: UPPER RESPIRATORY TRACT INFECTION
     Dosage: UNK
     Dates: start: 20110224, end: 20110330
  7. BENZONATATE [Concomitant]
     Indication: CONJUNCTIVITIS
     Dosage: UNK
     Dates: start: 20110314, end: 20110328
  8. BENZONATATE [Concomitant]
     Dosage: UNK
     Dates: start: 20110509, end: 20110516
  9. BENZONATATE [Concomitant]
     Dosage: UNK
     Dates: start: 20111121, end: 20111128
  10. ACETAMINOPHEN [Concomitant]
     Indication: CONJUNCTIVITIS
     Dosage: UNK
     Dates: start: 20101208, end: 20101215
  11. ACETAMINOPHEN [Concomitant]
     Indication: URINARY TRACT INFECTION
     Dosage: UNK
     Dates: start: 20110224, end: 20110303
  12. ACETAMINOPHEN [Concomitant]
     Indication: UPPER RESPIRATORY TRACT INFECTION
     Dosage: UNK
     Dates: start: 20120106, end: 20120111
  13. ACETAMINOPHEN [Concomitant]
     Indication: PYREXIA
     Dosage: UNK
     Dates: start: 20120203, end: 20120406
  14. COLCHICINE [Concomitant]
     Indication: GOUT
     Dosage: UNK
     Dates: start: 20101208, end: 20101215
  15. COLCHICINE [Concomitant]
     Dosage: UNK
     Dates: start: 20110620, end: 20110630
  16. COLCHICINE [Concomitant]
     Dosage: UNK
     Dates: start: 20120209, end: 20120225
  17. DENOSIN [Concomitant]
     Indication: UPPER RESPIRATORY TRACT INFECTION
     Dosage: UNK
     Dates: start: 20101208, end: 20101215
  18. DENOSIN [Concomitant]
     Indication: CONJUNCTIVITIS
     Dosage: UNK
     Dates: start: 20110224, end: 20110307
  19. DENOSIN [Concomitant]
     Indication: COUGH
     Dosage: UNK
     Dates: start: 20110314, end: 20110328
  20. DENOSIN [Concomitant]
     Dosage: UNK
     Dates: start: 20110509, end: 20110516
  21. DENOSIN [Concomitant]
     Dosage: UNK
     Dates: start: 20111121, end: 20111128
  22. DENOSIN [Concomitant]
     Dosage: UNK
     Dates: start: 20120330, end: 20120406
  23. DICLOFENAC [Concomitant]
     Indication: GOUT
     Dosage: UNK
     Dates: start: 20101208, end: 20101215
  24. DICLOFENAC [Concomitant]
     Dosage: UNK
     Dates: start: 20110620, end: 20110630
  25. DICLOFENAC [Concomitant]
     Dosage: UNK
     Dates: start: 20110509, end: 20110516
  26. DICLOFENAC [Concomitant]
     Dosage: UNK
     Dates: start: 20120109, end: 20120123
  27. FOLIC ACID [Concomitant]
     Indication: CHRONIC MYELOID LEUKAEMIA
     Dosage: UNK
     Dates: start: 20101129, end: 20110324
  28. FOLIC ACID [Concomitant]
     Dosage: UNK
     Dates: start: 20110407, end: 20120203
  29. FUCOU                              /01489301/ [Concomitant]
     Indication: COUGH
     Dosage: UNK
     Dates: start: 20110224, end: 20110307
  30. FUCOU                              /01489301/ [Concomitant]
     Dosage: UNK
     Dates: start: 20110314, end: 20110328
  31. FUCOU                              /01489301/ [Concomitant]
     Dosage: UNK
     Dates: start: 20110330, end: 20120406
  32. IWELL [Concomitant]
     Indication: GASTROINTESTINAL DISORDER
     Dosage: UNK
     Dates: start: 20110620, end: 20110630
  33. LEVOFLOXACIN [Concomitant]
     Indication: URINARY TRACT INFECTION
     Dosage: UNK
     Dates: start: 20120106, end: 20120111
  34. LOPERAMIDE [Concomitant]
     Indication: DIARRHOEA
     Dosage: UNK
     Dates: start: 20120106, end: 20121110
  35. MUBROXOL [Concomitant]
     Indication: UPPER RESPIRATORY TRACT INFECTION
     Dosage: UNK
     Dates: start: 20110509, end: 20110516
  36. NEOSTIGMINE METHYLSULFATE [Concomitant]
     Indication: CONJUNCTIVITIS
     Dosage: UNK
     Dates: start: 20110214, end: 20110328
  37. SCOPOLAMINE [Concomitant]
     Indication: URINARY TRACT INFECTION
     Dosage: UNK
     Dates: start: 20120106, end: 20120111

REACTIONS (3)
  - Chest pain [Unknown]
  - Hyperlipidaemia [Unknown]
  - Myocardial ischaemia [Unknown]
